FAERS Safety Report 19098170 (Version 1)
Quarter: 2021Q2

REPORT INFORMATION
  Report Type: Spontaneous
  Country: US (occurrence: US)
  Receive Date: 20210406
  Receipt Date: 20210406
  Transmission Date: 20210717
  Serious: No
  Sender: FDA-Public Use
  Company Number: US-MERZ PHARMACEUTICALS GMBH-21-01200

PATIENT
  Sex: Female

DRUGS (2)
  1. XEOMIN [Suspect]
     Active Substance: INCOBOTULINUMTOXINA
     Indication: PRODUCT USED FOR UNKNOWN INDICATION
  2. ORENCIA [Concomitant]
     Active Substance: ABATACEPT

REACTIONS (4)
  - Pain [Unknown]
  - Swelling face [Unknown]
  - Night sweats [Unknown]
  - Hot flush [Unknown]
